FAERS Safety Report 8234403-4 (Version None)
Quarter: 2012Q1

REPORT INFORMATION
  Report Type: 
  Country: None (occurrence: None)
  Receive Date: 20120326
  Receipt Date: 20120319
  Transmission Date: 20120608
  Serious: Yes (Hospitalization)
  Sender: FDA-Public Use
  Company Number: US-ROCHE-1044343

PATIENT
  Age: 60 Year
  Sex: Female
  Weight: 84.1 kg

DRUGS (4)
  1. PACLITAXEL [Suspect]
     Indication: OVARIAN EPITHELIAL CANCER
     Dosage: OVER 1 HR ON DAYS 1, 8 AND 15, LAST DOSE PRIOR TO SAE: 12/JAN/2012
     Route: 042
     Dates: start: 20111222
  2. SEPTRA [Concomitant]
  3. AVASTIN [Suspect]
     Indication: OVARIAN EPITHELIAL CANCER
     Dosage: OVER 30-90 MIN ON DAY 1, BEGINNING WITH CYCLE 2, LAST DOSE PRIOR TO SAE: 12/JAN/2012
     Route: 042
     Dates: start: 20111222
  4. CARBOPLATIN [Suspect]
     Indication: OVARIAN EPITHELIAL CANCER
     Dosage: DOSE: AUC 6 ON DAY 1
     Route: 033
     Dates: start: 20111222

REACTIONS (4)
  - DIARRHOEA [None]
  - HYPERKALAEMIA [None]
  - DEHYDRATION [None]
  - BLOOD CREATININE INCREASED [None]
